FAERS Safety Report 7774471-7 (Version None)
Quarter: 2011Q3

REPORT INFORMATION
  Report Type: 
  Country: None (occurrence: None)
  Receive Date: 20110923
  Receipt Date: 20110919
  Transmission Date: 20111222
  Serious: Yes (Death, Hospitalization)
  Sender: FDA-Public Use
  Company Number: CO-ROCHE-795521

PATIENT
  Sex: Male

DRUGS (3)
  1. DICLOFENAC [Concomitant]
     Indication: PAIN
     Route: 048
  2. TRAMADOL HCL [Concomitant]
     Indication: PAIN
     Dosage: DROPS AS NECESSARY
     Route: 048
  3. ACTEMRA [Suspect]
     Indication: RHEUMATOID ARTHRITIS
     Route: 042
     Dates: start: 20101108

REACTIONS (1)
  - LUNG NEOPLASM [None]
